FAERS Safety Report 8881735 (Version 2)
Quarter: 2012Q4

REPORT INFORMATION
  Report Type: 
  Country: US (occurrence: US)
  Receive Date: 20121101
  Receipt Date: 20121120
  Transmission Date: 20130627
  Serious: No
  Sender: FDA-Public Use
  Company Number: US-ROCHE-1151438

PATIENT
  Age: 46 Year
  Sex: Male

DRUGS (17)
  1. XOLAIR [Suspect]
     Indication: ASTHMA
     Route: 058
     Dates: start: 201205
  2. PREDNISONE [Concomitant]
  3. SYMBICORT [Concomitant]
     Route: 065
  4. SINGULAIR [Concomitant]
  5. PROVENTIL [Concomitant]
  6. SPIRIVA [Concomitant]
     Route: 065
  7. XOPENEX [Concomitant]
  8. BYSTOLIC [Concomitant]
  9. TOPAMAX [Concomitant]
     Route: 065
  10. PRIMIDONE [Concomitant]
     Route: 065
  11. NEXIUM [Concomitant]
  12. PENTASA [Concomitant]
  13. LAMICTAL [Concomitant]
  14. CONCERTA [Concomitant]
  15. CYMBALTA [Concomitant]
  16. XANAX [Concomitant]
  17. STRATTERA [Concomitant]

REACTIONS (1)
  - Pulmonary fibrosis [Unknown]
